FAERS Safety Report 17832409 (Version 26)
Quarter: 2025Q3

REPORT INFORMATION
  Report Type: Report from Study
  Country: US (occurrence: US)
  Receive Date: 20200528
  Receipt Date: 20250710
  Transmission Date: 20251021
  Serious: Yes (Hospitalization, Other)
  Sender: TAKEDA
  Company Number: US-SHIRE-US202017512

PATIENT
  Age: 66 Year
  Sex: Male
  Weight: 83.9 kg

DRUGS (43)
  1. HUMAN IMMUNOGLOBULIN G\HYALURONIDASE RECOMBINANT HUMAN [Suspect]
     Active Substance: HUMAN IMMUNOGLOBULIN G\HYALURONIDASE (HUMAN RECOMBINANT)
     Indication: Immunodeficiency common variable
     Dosage: 40 GRAM, Q3WEEKS
     Dates: start: 20160519
  2. HUMAN IMMUNOGLOBULIN G\HYALURONIDASE RECOMBINANT HUMAN [Suspect]
     Active Substance: HUMAN IMMUNOGLOBULIN G\HYALURONIDASE (HUMAN RECOMBINANT)
     Dosage: 40 GRAM, Q3WEEKS
  3. HUMAN IMMUNOGLOBULIN G\HYALURONIDASE RECOMBINANT HUMAN [Suspect]
     Active Substance: HUMAN IMMUNOGLOBULIN G\HYALURONIDASE (HUMAN RECOMBINANT)
     Dosage: 40 MILLIGRAM, Q3WEEKS
     Dates: start: 20200524
  4. HUMAN IMMUNOGLOBULIN G\HYALURONIDASE RECOMBINANT HUMAN [Suspect]
     Active Substance: HUMAN IMMUNOGLOBULIN G\HYALURONIDASE (HUMAN RECOMBINANT)
  5. HUMAN IMMUNOGLOBULIN G\HYALURONIDASE RECOMBINANT HUMAN [Suspect]
     Active Substance: HUMAN IMMUNOGLOBULIN G\HYALURONIDASE (HUMAN RECOMBINANT)
     Dosage: 40 GRAM, Q3WEEKS
  6. ALLEGRA [Concomitant]
     Active Substance: FEXOFENADINE HYDROCHLORIDE
  7. DIPHENHYDRAMINE [Concomitant]
     Active Substance: DIPHENHYDRAMINE
  8. IPRATROPIUM [Concomitant]
     Active Substance: IPRATROPIUM
  9. ACETAMINOPHEN [Concomitant]
     Active Substance: ACETAMINOPHEN
  10. LIDOCAINE [Concomitant]
     Active Substance: LIDOCAINE
  11. PRILOCAINE [Concomitant]
     Active Substance: PRILOCAINE
  12. SODIUM CHLORIDE [Concomitant]
     Active Substance: SODIUM CHLORIDE
  13. PREDNISONE [Concomitant]
     Active Substance: PREDNISONE
  14. BACTRIM [Concomitant]
     Active Substance: SULFAMETHOXAZOLE\TRIMETHOPRIM
  15. VITAMIN B12 [Concomitant]
     Active Substance: CYANOCOBALAMIN
  16. CLOTRIMAZOLE [Concomitant]
     Active Substance: CLOTRIMAZOLE
  17. AMBIEN [Concomitant]
     Active Substance: ZOLPIDEM TARTRATE
  18. EXFORGE [Concomitant]
     Active Substance: AMLODIPINE BESYLATE\VALSARTAN
  19. TAMSULOSIN [Concomitant]
     Active Substance: TAMSULOSIN
  20. BYSTOLIC [Concomitant]
     Active Substance: NEBIVOLOL HYDROCHLORIDE
  21. OMEPRAZOLE [Concomitant]
     Active Substance: OMEPRAZOLE
  22. ATORVASTATIN [Concomitant]
     Active Substance: ATORVASTATIN
  23. VITAMIN C [Concomitant]
     Active Substance: ASCORBIC ACID
  24. METFORMIN [Concomitant]
     Active Substance: METFORMIN HYDROCHLORIDE
  25. LIDOCAINE\PRILOCAINE [Concomitant]
     Active Substance: LIDOCAINE\PRILOCAINE
  26. EPINEPHRINE [Concomitant]
     Active Substance: EPINEPHRINE
  27. VITAMIN B [Concomitant]
     Active Substance: VITAMIN B
  28. CLOPIDOGREL [Concomitant]
     Active Substance: CLOPIDOGREL BISULFATE
  29. PANTOPRAZOLE SODIUM [Concomitant]
     Active Substance: PANTOPRAZOLE SODIUM
  30. JARDIANCE [Concomitant]
     Active Substance: EMPAGLIFLOZIN
  31. METHOTREXATE [Concomitant]
     Active Substance: METHOTREXATE
  32. SULFAMETHOXAZOLE AND TRIMETHOPRIM [Concomitant]
     Active Substance: SULFAMETHOXAZOLE\TRIMETHOPRIM
  33. ATORVASTATIN CALCIUM [Concomitant]
     Active Substance: ATORVASTATIN CALCIUM
  34. AMLODIPINE BESYLATE [Concomitant]
     Active Substance: AMLODIPINE BESYLATE
  35. EZETIMIBE [Concomitant]
     Active Substance: EZETIMIBE
  36. IPRATROPIUM BROMIDE [Concomitant]
     Active Substance: IPRATROPIUM BROMIDE
  37. FOLIC ACID [Concomitant]
     Active Substance: FOLIC ACID
  38. VASCEPA [Concomitant]
     Active Substance: ICOSAPENT ETHYL
  39. DIPHENHYDRAMINE HYDROCHLORIDE [Concomitant]
     Active Substance: DIPHENHYDRAMINE HYDROCHLORIDE
  40. NEBIVOLOL [Concomitant]
     Active Substance: NEBIVOLOL
  41. CHLORTHALIDONE [Concomitant]
     Active Substance: CHLORTHALIDONE
  42. MINERALS\VITAMINS [Concomitant]
     Active Substance: MINERALS\VITAMINS
  43. ASPIRIN [Concomitant]
     Active Substance: ASPIRIN

REACTIONS (31)
  - Bacterial infection [Unknown]
  - Gallbladder disorder [Unknown]
  - Chronic kidney disease [Unknown]
  - Prostate infection [Unknown]
  - Type 2 diabetes mellitus [Unknown]
  - Pneumonia fungal [Not Recovered/Not Resolved]
  - Pain [Unknown]
  - Weight fluctuation [Unknown]
  - Urine output decreased [Unknown]
  - Arthritis [Unknown]
  - Upper respiratory tract infection [Unknown]
  - Nasopharyngitis [Unknown]
  - Allergy to immunoglobulin therapy [Unknown]
  - Product administration error [Unknown]
  - Product leakage [Unknown]
  - COVID-19 [Unknown]
  - Unintentional medical device removal [Unknown]
  - Incorrect dose administered [Unknown]
  - Blood pressure abnormal [Unknown]
  - Illness [Unknown]
  - Blood glucose decreased [Recovered/Resolved]
  - Injection site pain [Unknown]
  - Asthenia [Unknown]
  - Hyperhidrosis [Unknown]
  - Myalgia [Unknown]
  - Arthralgia [Unknown]
  - Infusion site pain [Unknown]
  - Vomiting [Unknown]
  - Pyrexia [Unknown]
  - Nausea [Unknown]
  - Headache [Unknown]

NARRATIVE: CASE EVENT DATE: 20201101
